FAERS Safety Report 18182199 (Version 2)
Quarter: 2020Q4

REPORT INFORMATION
  Report Type: Spontaneous
  Country: RS (occurrence: RS)
  Receive Date: 20200821
  Receipt Date: 20201105
  Transmission Date: 20210113
  Serious: Yes (Other)
  Sender: FDA-Public Use
  Company Number: NVSC2020RS228145

PATIENT
  Age: 21 Year
  Sex: Female

DRUGS (1)
  1. COSENTYX [Suspect]
     Active Substance: SECUKINUMAB
     Indication: PSORIASIS
     Dosage: 300 MG, QMO
     Route: 058

REACTIONS (6)
  - Candida infection [Unknown]
  - Vulvovaginal candidiasis [Unknown]
  - Vulvovaginitis streptococcal [Unknown]
  - Dysmenorrhoea [Unknown]
  - Abdominal pain lower [Unknown]
  - Dysuria [Unknown]

NARRATIVE: CASE EVENT DATE: 202005
